FAERS Safety Report 17964199 (Version 5)
Quarter: 2020Q3

REPORT INFORMATION
  Report Type: Spontaneous
  Country: BR (occurrence: BR)
  Receive Date: 20200630
  Receipt Date: 20200803
  Transmission Date: 20201103
  Serious: Yes (Other)
  Sender: FDA-Public Use
  Company Number: NVSC2020BR182133

PATIENT
  Sex: Female
  Weight: 40 kg

DRUGS (1)
  1. ULTIBRO [Suspect]
     Active Substance: GLYCOPYRRONIUM\INDACATEROL
     Indication: CHRONIC OBSTRUCTIVE PULMONARY DISEASE
     Dosage: UNK UNK, QD
     Route: 065

REACTIONS (10)
  - Dyspnoea [Unknown]
  - Secretion discharge [Unknown]
  - Gait disturbance [Unknown]
  - Anxiety [Unknown]
  - Chronic obstructive pulmonary disease [Unknown]
  - Drug ineffective [Unknown]
  - Drug dependence [Unknown]
  - Rheumatoid arthritis [Unknown]
  - Epistaxis [Unknown]
  - Product quality issue [Unknown]
